FAERS Safety Report 5105671-2 (Version None)
Quarter: 2006Q3

REPORT INFORMATION
  Report Type: 
  Country: None (occurrence: None)
  Receive Date: 20060915
  Receipt Date: 20060911
  Transmission Date: 20061208
  Serious: Yes (Other)
  Sender: FDA-Public Use
  Company Number: 2006SE04870

PATIENT
  Age: 74 Year
  Sex: Female

DRUGS (3)
  1. ATENOLOL [Suspect]
     Indication: HYPERTENSION
  2. NORVASC [Suspect]
     Indication: HYPERTENSION
  3. LOTREL [Suspect]
     Indication: HYPERTENSION

REACTIONS (2)
  - BLOOD PRESSURE INADEQUATELY CONTROLLED [None]
  - HYPOTENSION [None]
